FAERS Safety Report 5223871-8 (Version None)
Quarter: 2007Q1

REPORT INFORMATION
  Report Type: 
  Country: None (occurrence: None)
  Receive Date: 20070126
  Receipt Date: 20070110
  Transmission Date: 20070707
  Serious: Yes (Life-Threatening)
  Sender: FDA-Public Use
  Company Number: 2007BL000079

PATIENT
  Age: 56 Year
  Sex: Female

DRUGS (4)
  1. PREDNISOLONE SODIUM PHOSPHATE [Suspect]
     Indication: BRONCHIECTASIS
     Dosage: 40 MILLIGRAMS; ORAL
     Route: 048
  2. AZITHROMYCIN [Concomitant]
  3. CARBOCISTEINE [Concomitant]
  4. COLOMYCIN [Concomitant]

REACTIONS (2)
  - DIABETES MELLITUS [None]
  - PANCREATITIS ACUTE [None]
